FAERS Safety Report 7417288-5 (Version None)
Quarter: 2011Q2

REPORT INFORMATION
  Report Type: 
  Country: None (occurrence: None)
  Receive Date: 20110415
  Receipt Date: 20110408
  Transmission Date: 20111010
  Serious: Yes (Hospitalization)
  Sender: FDA-Public Use
  Company Number: IT-BRISTOL-MYERS SQUIBB COMPANY-15663339

PATIENT
  Age: 74 Year
  Sex: Male

DRUGS (5)
  1. ASPIRIN [Concomitant]
     Dosage: CARDIOASPIRIN GASTRORESISTANT TABS
     Route: 048
     Dates: start: 20010410, end: 20110407
  2. ATENOLOL [Concomitant]
     Dosage: TABS
     Route: 048
     Dates: start: 20090610, end: 20110407
  3. LASIX [Concomitant]
     Dosage: TABS
     Route: 048
     Dates: start: 20000302, end: 20110407
  4. LOSAPREX [Concomitant]
     Dosage: FILM COATED TABS
     Dates: start: 20000120, end: 20110215
  5. SPRYCEL [Suspect]
     Indication: CHRONIC MYELOID LEUKAEMIA
     Dosage: INT AND RESTARTED COATED TABS
     Dates: start: 20100610, end: 20110215

REACTIONS (1)
  - RESPIRATORY FAILURE [None]
